FAERS Safety Report 24313756 (Version 2)
Quarter: 2024Q4

REPORT INFORMATION
  Report Type: Spontaneous
  Country: FR (occurrence: FR)
  Receive Date: 20240912
  Receipt Date: 20241025
  Transmission Date: 20250115
  Serious: Yes (Life-Threatening, Other)
  Sender: FRESENIUS KABI
  Company Number: None

PATIENT
  Age: 71 Year
  Sex: Male
  Weight: 72 kg

DRUGS (24)
  1. ROCURONIUM BROMIDE [Suspect]
     Active Substance: ROCURONIUM BROMIDE
     Indication: Anaesthesia
     Dosage: 70 MILLIGRAM, 1 DOSAGE TOTAL
     Route: 042
  2. ROCURONIUM BROMIDE [Suspect]
     Active Substance: ROCURONIUM BROMIDE
     Dosage: 70 MILLIGRAM, 1 DOSAGE TOTAL
     Route: 042
     Dates: start: 20240819
  3. ROCURONIUM BROMIDE [Suspect]
     Active Substance: ROCURONIUM BROMIDE
     Dosage: 70 MILLIGRAM, 1 DOSAGE TOTAL
     Route: 042
     Dates: start: 20240819
  4. ROCURONIUM BROMIDE [Suspect]
     Active Substance: ROCURONIUM BROMIDE
     Dosage: 70 MILLIGRAM, 1 DOSAGE TOTAL
     Route: 042
     Dates: start: 20240819
  5. ROCURONIUM BROMIDE [Suspect]
     Active Substance: ROCURONIUM BROMIDE
     Route: 042
     Dates: start: 20240819, end: 20240819
  6. PROPOFOL [Suspect]
     Active Substance: PROPOFOL
     Indication: Anaesthesia
     Dosage: 100 MILLIGRAM, 1 DOSAGE TOTAL
     Route: 042
  7. PROPOFOL [Suspect]
     Active Substance: PROPOFOL
     Dosage: 100 MILLIGRAM, 1 DOSAGE TOTAL
     Route: 042
     Dates: start: 20240819
  8. PROPOFOL [Suspect]
     Active Substance: PROPOFOL
     Dosage: 100 MILLIGRAM, 1 DOSAGE TOTAL
     Route: 042
     Dates: start: 20240819
  9. PROPOFOL [Suspect]
     Active Substance: PROPOFOL
     Dosage: 100 MILLIGRAM, 1 DOSAGE TOTAL
     Route: 042
     Dates: start: 20240819
  10. PROPOFOL [Suspect]
     Active Substance: PROPOFOL
     Dosage: DURATION OF DRUG ADMINISTRATION-9 MINUTES
     Route: 042
     Dates: start: 20240819, end: 20240819
  11. KETAMINE [Suspect]
     Active Substance: KETAMINE
     Indication: Anaesthesia
     Dosage: 15 MILLIGRAM, 1 DOSAGE TOTAL
     Route: 042
  12. KETAMINE [Suspect]
     Active Substance: KETAMINE
     Dosage: 15 MILLIGRAM, 1 DOSAGE TOTAL
     Route: 042
     Dates: start: 20240819
  13. KETAMINE [Suspect]
     Active Substance: KETAMINE
     Dosage: 15 MILLIGRAM, 1 DOSAGE TOTAL
     Route: 042
     Dates: start: 20240819
  14. KETAMINE [Suspect]
     Active Substance: KETAMINE
     Dosage: 15 MILLIGRAM, 1 DOSAGE TOTAL
     Route: 042
     Dates: start: 20240819
  15. KETAMINE [Suspect]
     Active Substance: KETAMINE
     Dosage: DURATION OF DRUG ADMINISTRATION-9 MINUTE
     Route: 042
     Dates: start: 20240819, end: 20240819
  16. NOREPINEPHRINE [Concomitant]
     Active Substance: NOREPINEPHRINE\NOREPINEPHRINE BITARTRATE
     Indication: Product used for unknown indication
     Dosage: 5 MILLILITRE, 1 DOSE HOURLY
     Route: 065
     Dates: start: 20240819
  17. NOREPINEPHRINE [Concomitant]
     Active Substance: NOREPINEPHRINE\NOREPINEPHRINE BITARTRATE
     Dosage: 5 MILLILITRE, 1 DOSE HOURLY
     Route: 065
     Dates: start: 20240819
  18. NOREPINEPHRINE [Concomitant]
     Active Substance: NOREPINEPHRINE\NOREPINEPHRINE BITARTRATE
     Dosage: 5 MILLILITRE, 1 DOSE HOURLY
     Route: 065
     Dates: start: 20240819
  19. NOREPINEPHRINE [Concomitant]
     Active Substance: NOREPINEPHRINE\NOREPINEPHRINE BITARTRATE
     Dosage: 5 MILLILITRE, 1 DOSE HOURLY
     Route: 065
     Dates: start: 20240819
  20. CALCIUM CHLORIDE\MAGNESIUM CHLORIDE\MALIC ACID\POTASSIUM CHLORIDE\SODI [Concomitant]
     Active Substance: CALCIUM CHLORIDE\MAGNESIUM CHLORIDE\MALIC ACID\POTASSIUM CHLORIDE\SODIUM ACETATE\SODIUM CHLORIDE
     Indication: Product used for unknown indication
     Dosage: 500 MILLILITRE, 1 DOSAGE TOTAL
     Route: 042
     Dates: start: 20240819
  21. CALCIUM CHLORIDE\MAGNESIUM CHLORIDE\MALIC ACID\POTASSIUM CHLORIDE\SODI [Concomitant]
     Active Substance: CALCIUM CHLORIDE\MAGNESIUM CHLORIDE\MALIC ACID\POTASSIUM CHLORIDE\SODIUM ACETATE\SODIUM CHLORIDE
     Dosage: 500 MILLILITRE, 1 DOSAGE TOTAL
     Route: 042
     Dates: start: 20240819
  22. CALCIUM CHLORIDE\MAGNESIUM CHLORIDE\MALIC ACID\POTASSIUM CHLORIDE\SODI [Concomitant]
     Active Substance: CALCIUM CHLORIDE\MAGNESIUM CHLORIDE\MALIC ACID\POTASSIUM CHLORIDE\SODIUM ACETATE\SODIUM CHLORIDE
     Dosage: 500 MILLILITRE, 1 DOSAGE TOTAL
     Route: 042
     Dates: start: 20240819
  23. CALCIUM CHLORIDE\MAGNESIUM CHLORIDE\MALIC ACID\POTASSIUM CHLORIDE\SODI [Concomitant]
     Active Substance: CALCIUM CHLORIDE\MAGNESIUM CHLORIDE\MALIC ACID\POTASSIUM CHLORIDE\SODIUM ACETATE\SODIUM CHLORIDE
     Dosage: 500 MILLILITRE, 1 DOSAGE TOTAL
     Route: 042
     Dates: start: 20240819
  24. CALCIUM CHLORIDE\MAGNESIUM CHLORIDE\MALIC ACID\POTASSIUM CHLORIDE\SODI [Concomitant]
     Active Substance: CALCIUM CHLORIDE\MAGNESIUM CHLORIDE\MALIC ACID\POTASSIUM CHLORIDE\SODIUM ACETATE\SODIUM CHLORIDE
     Route: 042
     Dates: start: 20240819, end: 20240819

REACTIONS (1)
  - Anaphylactic shock [Recovering/Resolving]

NARRATIVE: CASE EVENT DATE: 20240819
